FAERS Safety Report 10175011 (Version 2)
Quarter: 2014Q2

REPORT INFORMATION
  Report Type: Report from Study
  Country: MX (occurrence: MX)
  Receive Date: 20140515
  Receipt Date: 20140605
  Transmission Date: 20141212
  Serious: Yes (Other)
  Sender: FDA-Public Use
  Company Number: PHHY2014MX058972

PATIENT
  Sex: Female

DRUGS (2)
  1. TEGRETOL [Suspect]
     Indication: CONVULSION
     Dosage: UNK UKN, UNK
     Dates: start: 19950118
  2. TEGRETOL 400 LC [Suspect]
     Indication: CONVULSION
     Dosage: 2.5 DF, DAILY
     Route: 048
     Dates: start: 199401, end: 201403

REACTIONS (3)
  - Thinking abnormal [Recovered/Resolved]
  - Hallucination, auditory [Recovered/Resolved]
  - Depression [Recovered/Resolved]
